FAERS Safety Report 15288043 (Version 1)
Quarter: 2018Q3

REPORT INFORMATION
  Report Type: Spontaneous
  Country: US (occurrence: US)
  Receive Date: 20180817
  Receipt Date: 20180817
  Transmission Date: 20181010
  Serious: No
  Sender: FDA-Public Use
  Company Number: US-PFIZER INC-2018141665

PATIENT
  Age: 8 Year
  Sex: Male

DRUGS (2)
  1. GENOTROPIN [Suspect]
     Active Substance: SOMATROPIN
     Indication: HYPOTHYROIDISM
     Dosage: 1 MG, 1X/DAY (NIGHTLY)
     Dates: start: 2011
  2. GENOTROPIN [Suspect]
     Active Substance: SOMATROPIN
     Indication: HYPOPITUITARISM
     Dosage: 1.2 MG, DAILY
     Dates: start: 20100818

REACTIONS (3)
  - Wrong technique in device usage process [Unknown]
  - Drug dose omission [Unknown]
  - Tri-iodothyronine increased [Unknown]

NARRATIVE: CASE EVENT DATE: 20170221
